FAERS Safety Report 5508186-2 (Version None)
Quarter: 2007Q4

REPORT INFORMATION
  Report Type: 
  Country: None (occurrence: None)
  Receive Date: 20071106
  Receipt Date: 20071030
  Transmission Date: 20080405
  Serious: Yes (Other)
  Sender: FDA-Public Use
  Company Number: DE-PFIZER INC-2007087966

PATIENT
  Sex: Female
  Weight: 71 kg

DRUGS (4)
  1. GENOTROPIN [Suspect]
     Indication: HYPOPITUITARISM
     Dosage: DAILY DOSE:.4MG-FREQ:DAILY
     Dates: start: 20040427, end: 20060427
  2. LEVOTHYROXINE SODIUM [Concomitant]
     Dosage: DAILY DOSE:100MCG-FREQ:DAILY
     Route: 048
     Dates: start: 19960101
  3. HYDROCORTISON [Concomitant]
     Route: 048
     Dates: start: 19960101
  4. DESMOPRESSIN ACETATE [Concomitant]
     Dosage: DAILY DOSE:.4MG-FREQ:DAILY

REACTIONS (1)
  - PITUITARY TUMOUR BENIGN [None]
